FAERS Safety Report 9822888 (Version 1)
Quarter: 2014Q1

REPORT INFORMATION
  Report Type: Spontaneous
  Country: US (occurrence: US)
  Receive Date: 20140116
  Receipt Date: 20140116
  Transmission Date: 20141002
  Serious: Yes (Life-Threatening, Hospitalization, Other)
  Sender: FDA-Public Use
  Company Number: US-ELI_LILLY_AND_COMPANY-US201401003773

PATIENT
  Age: 69 Year
  Sex: Female

DRUGS (1)
  1. HUMALOG 25% LISPRO, 75% NPL [Suspect]
     Indication: TYPE 2 DIABETES MELLITUS
     Dosage: 15 U, TID
     Route: 065
     Dates: start: 2009

REACTIONS (9)
  - Pneumothorax [Unknown]
  - Lung infection [Unknown]
  - Chronic obstructive pulmonary disease [Unknown]
  - Coma [Unknown]
  - Blood glucose abnormal [Unknown]
  - Cardiac disorder [Unknown]
  - Renal impairment [Unknown]
  - Dementia Alzheimer^s type [Unknown]
  - Dyspnoea [Unknown]
